FAERS Safety Report 11922474 (Version 1)
Quarter: 2016Q1

REPORT INFORMATION
  Report Type: Spontaneous
  Country: US (occurrence: US)
  Receive Date: 20160115
  Receipt Date: 20160115
  Transmission Date: 20160526
  Serious: Yes (Other)
  Sender: FDA-Public Use
  Company Number: US-PFIZER INC-2016018505

PATIENT
  Age: 68 Year
  Sex: Female
  Weight: 90 kg

DRUGS (9)
  1. PREMARIN [Suspect]
     Active Substance: ESTROGENS, CONJUGATED
     Dosage: UNK UNK, ALTERNATE DAY (EVERY OTHER DAY)
     Route: 048
     Dates: start: 201510, end: 20160108
  2. HYDROCHLOROTHIAZIDE AND LISINOPRIL [Concomitant]
     Active Substance: HYDROCHLOROTHIAZIDE\LISINOPRIL
     Indication: HYPERTENSION
     Dosage: UNK, DAILY
     Route: 048
  3. ASPIRIN BAYER [Concomitant]
     Active Substance: ASPIRIN
     Indication: BLOOD PRESSURE MANAGEMENT
     Dosage: 81 MG, ALTERNATE DAY (EVERY OTHER DAY)
     Route: 048
  4. PHILLIPS COLON HEALTH [Concomitant]
     Indication: GASTROINTESTINAL DISORDER
     Dosage: 1 DF, 1X/DAY
     Route: 048
     Dates: start: 2015
  5. PREMARIN [Suspect]
     Active Substance: ESTROGENS, CONJUGATED
     Indication: VAGINAL DISORDER
     Dosage: 0.3 TABLET, DAILY
     Route: 048
     Dates: start: 1986
  6. CALCIUM 600 [Concomitant]
     Indication: OSTEOPOROSIS PROPHYLAXIS
     Dosage: 1 TABLET , 1X/DAY
     Route: 048
  7. PREMARIN [Suspect]
     Active Substance: ESTROGENS, CONJUGATED
     Dosage: 0.3 TABLET, DAILY
     Route: 048
     Dates: end: 2015
  8. VITAMIN D3 [Concomitant]
     Active Substance: CHOLECALCIFEROL
     Dosage: 1000 MG, 1X/DAY
     Route: 048
  9. OMEPRAZOLE. [Concomitant]
     Active Substance: OMEPRAZOLE
     Indication: GASTROOESOPHAGEAL REFLUX DISEASE
     Dosage: 20 MG, DAILY
     Route: 048

REACTIONS (3)
  - Bladder prolapse [Recovered/Resolved]
  - Diabetes mellitus [Not Recovered/Not Resolved]
  - Weight increased [Recovered/Resolved]

NARRATIVE: CASE EVENT DATE: 201301
